FAERS Safety Report 16103435 (Version 1)
Quarter: 2019Q1

REPORT INFORMATION
  Report Type: Report from Study
  Country: US (occurrence: US)
  Receive Date: 20190322
  Receipt Date: 20190322
  Transmission Date: 20190418
  Serious: Yes (Other)
  Sender: FDA-Public Use
  Company Number: US-BIOGEN-2019BI00713485

PATIENT
  Sex: Female

DRUGS (1)
  1. AVONEX [Suspect]
     Active Substance: INTERFERON BETA-1A
     Indication: MULTIPLE SCLEROSIS
     Route: 030
     Dates: start: 2011, end: 20190118

REACTIONS (4)
  - Diarrhoea [Recovered/Resolved]
  - Weight decreased [Unknown]
  - Hepatic enzyme increased [Unknown]
  - Carcinoid tumour of the liver [Unknown]
